FAERS Safety Report 8236244-0 (Version None)
Quarter: 2012Q1

REPORT INFORMATION
  Report Type: 
  Country: None (occurrence: None)
  Receive Date: 20120327
  Receipt Date: 20120313
  Transmission Date: 20120608
  Serious: Yes (Other)
  Sender: FDA-Public Use
  Company Number: PHHY2012JP020418

PATIENT
  Age: 11 Year
  Sex: Male

DRUGS (7)
  1. CYCLOSPORINE [Suspect]
     Indication: STEM CELL TRANSPLANT
  2. MITOMYCIN [Concomitant]
  3. BUSULFAN [Concomitant]
     Indication: GRAFT VERSUS HOST DISEASE
  4. MELPHALAN HYDROCHLORIDE [Concomitant]
     Indication: GRAFT VERSUS HOST DISEASE
  5. CYCLOSPORINE [Suspect]
     Indication: GRAFT VERSUS HOST DISEASE
  6. CISPLATIN [Concomitant]
     Indication: GRAFT VERSUS HOST DISEASE
  7. ADRIAMYCIN PFS [Concomitant]

REACTIONS (3)
  - PLATELET COUNT DECREASED [None]
  - FIBRIN DEGRADATION PRODUCTS INCREASED [None]
  - WEIGHT INCREASED [None]
